FAERS Safety Report 4477077-0 (Version None)
Quarter: 2004Q4

REPORT INFORMATION
  Report Type: 
  Country: None (occurrence: None)
  Receive Date: 20041018
  Receipt Date: 20040818
  Transmission Date: 20050328
  Serious: Yes (Hospitalization)
  Sender: FDA-Public Use
  Company Number: DE-BRISTOL-MYERS SQUIBB COMPANY-12676599

PATIENT
  Age: 66 Year
  Sex: Male
  Weight: 66 kg

DRUGS (13)
  1. CISPLATIN [Suspect]
     Indication: BLADDER CANCER
     Dosage: 1ST DOSE: 26MAY04
     Dates: start: 20040627, end: 20040627
  2. GEMCITABINE [Suspect]
     Indication: BLADDER CANCER
     Dosage: 1ST DOSE: 26MAY04
     Dates: start: 20040803, end: 20040803
  3. PANTOPRAZOLE SODIUM [Concomitant]
  4. ASPIRIN [Concomitant]
  5. DELIX [Concomitant]
  6. DICLOFENAC [Concomitant]
  7. INSULIN [Concomitant]
  8. ALLOPURINOL [Concomitant]
  9. GLUCOSE [Concomitant]
  10. VOLUVEN [Concomitant]
  11. SODIUM CHLORIDE 0.9% [Concomitant]
  12. ZOCOR [Concomitant]
  13. THIAMAZOLE [Concomitant]

REACTIONS (2)
  - DIABETES MELLITUS [None]
  - RENAL FAILURE [None]
